FAERS Safety Report 14253325 (Version 1)
Quarter: 2017Q4

REPORT INFORMATION
  Report Type: Spontaneous
  Country: US (occurrence: US)
  Receive Date: 20171205
  Receipt Date: 20171205
  Transmission Date: 20180321
  Serious: Yes (Other)
  Sender: FDA-Public Use
  Company Number: PHEH2017US038488

PATIENT
  Sex: Female

DRUGS (1)
  1. OMNITROPE [Suspect]
     Active Substance: SOMATROPIN
     Indication: PRODUCT USED FOR UNKNOWN INDICATION
     Route: 065

REACTIONS (7)
  - Idiopathic intracranial hypertension [Unknown]
  - Blood luteinising hormone increased [Unknown]
  - Headache [Unknown]
  - Blood follicle stimulating hormone increased [Unknown]
  - Visual impairment [Unknown]
  - Oestradiol decreased [Unknown]
  - Epistaxis [Unknown]
